FAERS Safety Report 13148437 (Version 1)
Quarter: 2017Q1

REPORT INFORMATION
  Report Type: Spontaneous
  Country: US (occurrence: US)
  Receive Date: 20170124
  Receipt Date: 20170124
  Transmission Date: 20170428
  Serious: Yes (Hospitalization)
  Sender: FDA-Public Use
  Company Number: None

PATIENT
  Age: 48 Year
  Sex: Female

DRUGS (10)
  1. CAPECITABINE 500MG [Suspect]
     Active Substance: CAPECITABINE
     Indication: BREAST CANCER
     Route: 048
     Dates: start: 20170105
  2. ONDANSETRON [Concomitant]
     Active Substance: ONDANSETRON
  3. OXYCODONE [Concomitant]
     Active Substance: OXYCODONE
  4. SENEXON [Concomitant]
     Active Substance: SENNOSIDES A AND B
  5. ASPIRIN. [Concomitant]
     Active Substance: ASPIRIN
  6. MORPHINE [Concomitant]
     Active Substance: MORPHINE
  7. IBUPROFEN. [Concomitant]
     Active Substance: IBUPROFEN
  8. VITAMIN D3 [Concomitant]
     Active Substance: CHOLECALCIFEROL
  9. LETROZOLE. [Concomitant]
     Active Substance: LETROZOLE
  10. OMEPRAZOLE. [Concomitant]
     Active Substance: OMEPRAZOLE

REACTIONS (1)
  - Therapy change [None]
